FAERS Safety Report 9457742 (Version 1)
Quarter: 2013Q3

REPORT INFORMATION
  Report Type: Spontaneous
  Country: CH (occurrence: None)
  Receive Date: 20130812
  Receipt Date: 20130812
  Transmission Date: 20140515
  Serious: Yes (Other)
  Sender: FDA-Public Use
  Company Number: 20130385

PATIENT
  Sex: Male

DRUGS (2)
  1. VENOFER (IRON SUCROSE INJECTION-VIFOR) (IRON SUCROSE INJECTION) 20MG/ML [Suspect]
     Dosage: 1 AMPOULE
     Route: 042
     Dates: end: 20130606
  2. HEPARIN [Concomitant]

REACTIONS (5)
  - Dyspnoea [None]
  - Infusion related reaction [None]
  - Blood pressure increased [None]
  - Cardiac arrest [None]
  - Hypertension [None]
